FAERS Safety Report 6824077-9 (Version None)
Quarter: 2010Q3

REPORT INFORMATION
  Report Type: 
  Country: None (occurrence: None)
  Receive Date: 20100708
  Receipt Date: 20061003
  Transmission Date: 20110219
  Serious: No
  Sender: FDA-Public Use
  Company Number: US-PFIZER INC-2006122094

PATIENT
  Sex: Female
  Weight: 64.41 kg

DRUGS (5)
  1. CHANTIX [Suspect]
     Dates: start: 20060901
  2. CELEBREX [Concomitant]
  3. SPIRONOLACTONE [Concomitant]
  4. DETROL [Concomitant]
  5. LISINOPRIL [Concomitant]
     Indication: HYPERTENSION

REACTIONS (5)
  - ASTHENIA [None]
  - DRUG ADMINISTRATION ERROR [None]
  - FATIGUE [None]
  - MEDICATION ERROR [None]
  - SOMNOLENCE [None]
